FAERS Safety Report 5705625-9 (Version None)
Quarter: 2008Q2

REPORT INFORMATION
  Report Type: 
  Country: None (occurrence: None)
  Receive Date: 20080415
  Receipt Date: 20080409
  Transmission Date: 20081010
  Serious: Yes (Hospitalization, Other)
  Sender: FDA-Public Use
  Company Number: AU-AVENTIS-200813164GDDC

PATIENT
  Age: 76 Year
  Sex: Female

DRUGS (1)
  1. LANTUS [Suspect]
     Dosage: DOSE QUANTITY: 34
     Dates: start: 20080317

REACTIONS (2)
  - CIRCULATORY COLLAPSE [None]
  - PALPITATIONS [None]
